FAERS Safety Report 25180060 (Version 2)
Quarter: 2025Q2

REPORT INFORMATION
  Report Type: Spontaneous
  Country: US (occurrence: US)
  Receive Date: 20250409
  Receipt Date: 20250415
  Transmission Date: 20250717
  Serious: Yes (Hospitalization, Other)
  Sender: Kenvue
  Company Number: US-KENVUE-20250400790

PATIENT
  Age: 14 Year
  Sex: Female

DRUGS (2)
  1. ACETAMINOPHEN [Suspect]
     Active Substance: ACETAMINOPHEN
     Indication: Product used for unknown indication
     Route: 048
  2. IRON [Suspect]
     Active Substance: IRON
     Indication: Product used for unknown indication
     Route: 048

REACTIONS (6)
  - Poisoning deliberate [Unknown]
  - Acute hepatic failure [Unknown]
  - Hyperammonaemia [Unknown]
  - Coagulopathy [Unknown]
  - Vasoplegia syndrome [Unknown]
  - Haemodynamic instability [Unknown]
